FAERS Safety Report 15965990 (Version 1)
Quarter: 2019Q1

REPORT INFORMATION
  Report Type: Spontaneous
  Country: US (occurrence: US)
  Receive Date: 20190215
  Receipt Date: 20190215
  Transmission Date: 20190418
  Serious: No
  Sender: FDA-Public Use
  Company Number: US-PFIZER INC-2019061909

PATIENT
  Age: 43 Year
  Sex: Male
  Weight: 107.5 kg

DRUGS (1)
  1. VIAGRA [Suspect]
     Active Substance: SILDENAFIL CITRATE
     Dosage: 100 MG, AS NEEDED
     Route: 048
     Dates: start: 201712, end: 201812

REACTIONS (1)
  - Anger [Not Recovered/Not Resolved]

NARRATIVE: CASE EVENT DATE: 201812
